FAERS Safety Report 18742991 (Version 1)
Quarter: 2021Q1

REPORT INFORMATION
  Report Type: Spontaneous
  Country: US (occurrence: US)
  Receive Date: 20210114
  Receipt Date: 20210114
  Transmission Date: 20210419
  Serious: No
  Sender: FDA-Public Use
  Company Number: US-NOVOPROD-754584

PATIENT
  Age: 67 Year
  Sex: Male

DRUGS (1)
  1. OZEMPIC [Suspect]
     Active Substance: SEMAGLUTIDE
     Indication: TYPE 2 DIABETES MELLITUS
     Dosage: 0.25 MG
     Route: 058
     Dates: start: 202008

REACTIONS (7)
  - Dizziness [Recovering/Resolving]
  - Arthralgia [Recovering/Resolving]
  - Cold sweat [Recovering/Resolving]
  - Insomnia [Recovering/Resolving]
  - Feeding disorder [Not Recovered/Not Resolved]
  - Flatulence [Recovering/Resolving]
  - Nausea [Not Recovered/Not Resolved]

NARRATIVE: CASE EVENT DATE: 20200915
